FAERS Safety Report 8060754-2 (Version None)
Quarter: 2012Q1

REPORT INFORMATION
  Report Type: 
  Country: None (occurrence: None)
  Receive Date: 20120120
  Receipt Date: 20110131
  Transmission Date: 20120608
  Serious: No
  Sender: FDA-Public Use
  Company Number: US-ALLERGAN-1100195US

PATIENT
  Sex: Female

DRUGS (3)
  1. RESTASIS [Suspect]
     Indication: DRY EYE
     Dosage: 1 GTT, BID
     Dates: start: 20110105
  2. CELLUVISC [Concomitant]
     Indication: DRY EYE
     Dosage: UNK
  3. REFRESH SENSITIVE EXTRA THICK GEL [Concomitant]

REACTIONS (5)
  - EYE IRRITATION [None]
  - EYE PRURITUS [None]
  - ERYTHEMA OF EYELID [None]
  - EYE PAIN [None]
  - DRY EYE [None]
